FAERS Safety Report 6401613-8 (Version None)
Quarter: 2009Q4

REPORT INFORMATION
  Report Type: 
  Country: None (occurrence: None)
  Receive Date: 20091009
  Receipt Date: 20091009
  Transmission Date: 20100525
  Serious: Yes (Other)
  Sender: FDA-Public Use
  Company Number: None

PATIENT
  Age: 21 Year
  Sex: Female
  Weight: 67.1324 kg

DRUGS (1)
  1. ZYPREXA [Suspect]
     Indication: DEPRESSION
     Dosage: 2.5MG A NIGHT EVERY NIGHT PO
     Route: 048
     Dates: start: 20090910, end: 20091008

REACTIONS (2)
  - FEELING ABNORMAL [None]
  - WEIGHT INCREASED [None]
